FAERS Safety Report 6028155-6 (Version None)
Quarter: 2008Q4

REPORT INFORMATION
  Report Type: 
  Country: None (occurrence: None)
  Receive Date: 20081231
  Receipt Date: 20081231
  Transmission Date: 20090506
  Serious: No
  Sender: FDA-Public Use
  Company Number: None

PATIENT
  Age: 27 Year
  Sex: Female
  Weight: 56.6996 kg

DRUGS (2)
  1. LEXAPRO [Suspect]
     Indication: ANXIETY
     Dosage: 1 ONCE A DAY PO
     Route: 048
     Dates: start: 20070110, end: 20070610
  2. LEXAPRO [Suspect]
     Indication: ANXIETY
     Dosage: 1 ONCE A DAY PO
     Route: 048
     Dates: start: 20070812, end: 20070919

REACTIONS (4)
  - ANORGASMIA [None]
  - DISTURBANCE IN SEXUAL AROUSAL [None]
  - PARAESTHESIA [None]
  - SEXUAL DYSFUNCTION [None]
